FAERS Safety Report 20473459 (Version 1)
Quarter: 2022Q1

REPORT INFORMATION
  Report Type: Report from Study
  Country: IN (occurrence: IN)
  Receive Date: 20220215
  Receipt Date: 20220215
  Transmission Date: 20220423
  Serious: Yes (Other)
  Sender: FDA-Public Use
  Company Number: IN-BRISTOL-MYERS SQUIBB COMPANY-BMS-2022-019280

PATIENT
  Age: 63 Year
  Sex: Male
  Weight: 54.5 kg

DRUGS (1)
  1. NIVOLUMAB [Suspect]
     Active Substance: NIVOLUMAB
     Indication: Transitional cell carcinoma
     Dosage: 164 MILLIGRAM, Q2WK
     Route: 042
     Dates: start: 20211204

REACTIONS (3)
  - Jaundice [Unknown]
  - COVID-19 [Unknown]
  - Thyroiditis [Unknown]
